FAERS Safety Report 9567973 (Version 1)
Quarter: 2013Q3

REPORT INFORMATION
  Report Type: Spontaneous
  Country: US (occurrence: US)
  Receive Date: 20130930
  Receipt Date: 20130930
  Transmission Date: 20140515
  Serious: No
  Sender: FDA-Public Use
  Company Number: US-AMGEN-USASP2013055929

PATIENT
  Age: 31 Year
  Sex: Female
  Weight: 58.96 kg

DRUGS (9)
  1. ENBREL [Suspect]
     Indication: PRODUCT USED FOR UNKNOWN INDICATION
     Dosage: 25 MG, 2 TIMES/WK
     Route: 058
  2. MIDRIN                             /00450801/ [Concomitant]
     Dosage: UNK
  3. METOPROLOL [Concomitant]
     Dosage: 50 MG, UNK
  4. TOPAMAX [Concomitant]
     Dosage: 100 MG, UNK
  5. XANAX [Concomitant]
     Dosage: 0.25 MG, UNK
  6. MELOXICAM [Concomitant]
     Dosage: 15 MG, UNK
  7. VICODIN [Concomitant]
     Dosage: 5-500 MG
  8. NITROFURANTIN [Concomitant]
     Dosage: 100 MG, UNK
  9. MAGNESIUM [Concomitant]
     Dosage: 400 MG, UNK

REACTIONS (2)
  - Rheumatoid arthritis [Unknown]
  - Injection site urticaria [Unknown]
